FAERS Safety Report 6095288-8 (Version None)
Quarter: 2009Q1

REPORT INFORMATION
  Report Type: 
  Country: None (occurrence: None)
  Receive Date: 20090227
  Receipt Date: 20080229
  Transmission Date: 20090719
  Serious: No
  Sender: FDA-Public Use
  Company Number: A0712722A

PATIENT
  Age: 48 Year
  Sex: Female

DRUGS (2)
  1. LAMICTAL [Suspect]
     Dosage: 50MG PER DAY
     Route: 048
  2. ALPRAZOLAM [Concomitant]

REACTIONS (4)
  - AMNESIA [None]
  - BACK PAIN [None]
  - DISORIENTATION [None]
  - HEADACHE [None]
